FAERS Safety Report 4666509-0 (Version None)
Quarter: 2005Q2

REPORT INFORMATION
  Report Type: 
  Country: None (occurrence: None)
  Receive Date: 20050519
  Receipt Date: 20050510
  Transmission Date: 20051028
  Serious: Yes (Other)
  Sender: FDA-Public Use
  Company Number: GB-ABBOTT-05P-167-0300180-00

PATIENT
  Age: 20 Year
  Sex: Female

DRUGS (8)
  1. VALPROATE SODIUM [Suspect]
     Indication: EPILEPSY
     Dosage: NOT REPORTED
  2. VALPROATE SODIUM [Suspect]
  3. LAMOTRIGINE [Suspect]
     Indication: DRUG USE FOR UNKNOWN INDICATION
  4. LAMOTRIGINE [Suspect]
  5. GABAPENTIN [Concomitant]
     Indication: DRUG USE FOR UNKNOWN INDICATION
  6. GABAPENTIN [Concomitant]
     Dosage: SLOWLY TITRATED TO 1000 MG 3 TIMES DAILY
  7. CLONAZEPAM [Concomitant]
     Indication: DRUG USE FOR UNKNOWN INDICATION
     Dosage: NOT REPORTED
  8. CLONAZEPAM [Concomitant]
     Dosage: SLOWLY INCREASED TO 1 MG TWICE DAILY

REACTIONS (8)
  - CONSTIPATION [None]
  - CONVULSION [None]
  - LOSS OF CONSCIOUSNESS [None]
  - MENSTRUATION IRREGULAR [None]
  - PORPHYRIA ACUTE [None]
  - SLEEP DISORDER [None]
  - VOMITING [None]
  - WEIGHT DECREASED [None]
